FAERS Safety Report 20605705 (Version 2)
Quarter: 2022Q2

REPORT INFORMATION
  Report Type: Spontaneous
  Country: DE (occurrence: None)
  Receive Date: 20220317
  Receipt Date: 20220407
  Transmission Date: 20220720
  Serious: Yes (Other)
  Sender: FDA-Public Use
  Company Number: DE-ROCHE-3051184

PATIENT
  Sex: Female

DRUGS (3)
  1. MABTHERA [Suspect]
     Active Substance: RITUXIMAB
     Indication: Marginal zone lymphoma
     Dosage: IN COMBINATION WITH CHOP, SIX CYCLES
     Route: 065
     Dates: start: 2020, end: 2020
  2. MABTHERA [Suspect]
     Active Substance: RITUXIMAB
     Dosage: MONOTHERAPY, FOUR CYCLES
     Route: 065
  3. CYCLOPHOSPHAMIDE\DOXORUBICIN\PREDNISONE\VINCRISTINE [Suspect]
     Active Substance: CYCLOPHOSPHAMIDE\DOXORUBICIN\PREDNISONE\VINCRISTINE
     Indication: Marginal zone lymphoma
     Dosage: SIX CYCLES IN COMBINATION WITH RITUXIMAB
     Route: 065
     Dates: start: 2020, end: 2020

REACTIONS (2)
  - Lymphoma [Unknown]
  - Off label use [Unknown]

NARRATIVE: CASE EVENT DATE: 20200101
